FAERS Safety Report 8577760-1 (Version None)
Quarter: 2012Q3

REPORT INFORMATION
  Report Type: 
  Country: None (occurrence: None)
  Receive Date: 20120808
  Receipt Date: 20120730
  Transmission Date: 20120928
  Serious: Yes (Hospitalization)
  Sender: FDA-Public Use
  Company Number: DE-BIOGENIDEC-2012BI022343

PATIENT
  Age: 35 Year
  Sex: Female

DRUGS (3)
  1. DIURETIC [Concomitant]
     Indication: OEDEMA PERIPHERAL
     Dates: start: 20120503
  2. TYSABRI [Suspect]
     Indication: RELAPSING-REMITTING MULTIPLE SCLEROSIS
     Route: 042
     Dates: start: 20110121
  3. FUROSEMIDE [Concomitant]
     Indication: OEDEMA PERIPHERAL
     Dates: start: 20100318

REACTIONS (3)
  - HYPOKALAEMIA [None]
  - OEDEMA PERIPHERAL [None]
  - GASTRITIS [None]
